FAERS Safety Report 6229471-5 (Version None)
Quarter: 2009Q2

REPORT INFORMATION
  Report Type: 
  Country: None (occurrence: None)
  Receive Date: 20090615
  Receipt Date: 20090601
  Transmission Date: 20091009
  Serious: Yes (Hospitalization)
  Sender: FDA-Public Use
  Company Number: A0761192A

PATIENT
  Age: 43 Year
  Sex: Male
  Weight: 109.1 kg

DRUGS (6)
  1. AVANDIA [Suspect]
     Dosage: 4MG PER DAY
     Route: 048
     Dates: start: 20050915, end: 20071112
  2. METFORMIN HYDROCHLORIDE [Concomitant]
  3. ATENOLOL [Concomitant]
  4. LIPITOR [Concomitant]
  5. TRIAMTERENE [Concomitant]
  6. TUMS [Concomitant]

REACTIONS (1)
  - CEREBROVASCULAR ACCIDENT [None]
